FAERS Safety Report 4611452-6 (Version None)
Quarter: 2005Q1

REPORT INFORMATION
  Report Type: 
  Country: None (occurrence: None)
  Receive Date: 20050317
  Receipt Date: 20050307
  Transmission Date: 20050727
  Serious: Yes (Hospitalization)
  Sender: FDA-Public Use
  Company Number: US-JNJFOC-20041102087

PATIENT
  Sex: Female
  Weight: 108.86 kg

DRUGS (8)
  1. REMICADE [Suspect]
     Route: 042
  2. REMICADE [Suspect]
     Indication: RHEUMATOID ARTHRITIS
     Route: 042
  3. TYLENOL (CAPLET) [Concomitant]
     Indication: PAIN
  4. FOLIC ACID [Concomitant]
     Indication: RHEUMATOID ARTHRITIS
  5. METHOTREXATE [Concomitant]
     Indication: RHEUMATOID ARTHRITIS
  6. CALCIUM WITH D [Concomitant]
  7. CALCIUM WITH D [Concomitant]
  8. CALCIUM WITH D [Concomitant]
     Indication: NUTRITIONAL SUPPORT

REACTIONS (7)
  - CHEST DISCOMFORT [None]
  - DRUG INTERACTION [None]
  - DYSPNOEA [None]
  - INFUSION RELATED REACTION [None]
  - PULMONARY EMBOLISM [None]
  - PULMONARY HYPERTENSION [None]
  - THROMBOSIS [None]
